FAERS Safety Report 8434593-4 (Version None)
Quarter: 2012Q2

REPORT INFORMATION
  Report Type: 
  Country: None (occurrence: None)
  Receive Date: 20120614
  Receipt Date: 20120605
  Transmission Date: 20120825
  Serious: No
  Sender: FDA-Public Use
  Company Number: US-BIOGENIDEC-2012BI020517

PATIENT
  Sex: Female
  Weight: 83 kg

DRUGS (2)
  1. LEXAPRO [Concomitant]
     Indication: PRODUCT USED FOR UNKNOWN INDICATION
  2. TYSABRI [Suspect]
     Indication: MULTIPLE SCLEROSIS
     Route: 042
     Dates: start: 20090904

REACTIONS (20)
  - DYSAESTHESIA [None]
  - NEUROGENIC BLADDER [None]
  - NEURALGIA [None]
  - SPINAL PAIN [None]
  - LHERMITTE'S SIGN [None]
  - TEMPERATURE INTOLERANCE [None]
  - HYPOAESTHESIA [None]
  - NAUSEA [None]
  - NASAL SEPTAL OPERATION [None]
  - POSITIVE ROMBERGISM [None]
  - FATIGUE [None]
  - VISUAL IMPAIRMENT [None]
  - PUPILLARY REFLEX IMPAIRED [None]
  - VOMITING [None]
  - MULTIPLE SCLEROSIS RELAPSE [None]
  - MUSCLE SPASMS [None]
  - CHOLECYSTECTOMY [None]
  - DEPRESSION [None]
  - URINARY INCONTINENCE [None]
  - NEPHROLITHIASIS [None]
